FAERS Safety Report 4442350-9 (Version None)
Quarter: 2004Q3

REPORT INFORMATION
  Report Type: 
  Country: None (occurrence: None)
  Receive Date: 20040903
  Receipt Date: 20040719
  Transmission Date: 20050211
  Serious: Yes (Other)
  Sender: FDA-Public Use
  Company Number: 2004UW15107

PATIENT
  Age: 76 Year
  Sex: Male
  Weight: 90.7194 kg

DRUGS (5)
  1. CRESTOR [Suspect]
     Dosage: 10 MG DAILY PO
     Route: 048
  2. IBUPROFEN [Concomitant]
  3. DIURETIC [Concomitant]
  4. TOPROL-XL [Concomitant]
  5. PRINIVIL [Concomitant]

REACTIONS (2)
  - ASTHENIA [None]
  - DIFFICULTY IN WALKING [None]
